FAERS Safety Report 9290936 (Version 2)
Quarter: 2013Q2

REPORT INFORMATION
  Report Type: Spontaneous
  Country: US (occurrence: US)
  Receive Date: 20130515
  Receipt Date: 20130619
  Transmission Date: 20140414
  Serious: Yes (Other)
  Sender: FDA-Public Use
  Company Number: US-CELGENEUS-163-21880-13041685

PATIENT
  Age: 70 Year
  Sex: Female

DRUGS (4)
  1. REVLIMID [Suspect]
     Indication: PLASMA CELL MYELOMA
     Dosage: 15 MILLIGRAM
     Route: 048
     Dates: start: 20100710
  2. PREDNISONE [Concomitant]
     Indication: PROPHYLAXIS
     Dosage: 10 MILLIGRAM
     Route: 048
  3. PREDNISONE [Concomitant]
     Indication: PLASMA CELL MYELOMA
  4. PENICILLIN [Concomitant]
     Indication: PRODUCT USED FOR UNKNOWN INDICATION
     Route: 065

REACTIONS (4)
  - Osteonecrosis of jaw [Unknown]
  - Femur fracture [Unknown]
  - Clostridium difficile infection [Unknown]
  - Rash pruritic [Unknown]
